FAERS Safety Report 8361064-6 (Version None)
Quarter: 2012Q2

REPORT INFORMATION
  Report Type: 
  Country: None (occurrence: None)
  Receive Date: 20120515
  Receipt Date: 20120503
  Transmission Date: 20120825
  Serious: Yes (Other)
  Sender: FDA-Public Use
  Company Number: US-ROCHE-1018906

PATIENT
  Sex: Female

DRUGS (11)
  1. KENALOG [Concomitant]
     Dates: start: 20110927
  2. ASPIRIN [Concomitant]
     Route: 048
  3. PRILOSEC [Concomitant]
     Route: 048
  4. CARTIA XT [Concomitant]
     Route: 048
  5. KENALOG [Concomitant]
     Route: 050
     Dates: start: 20081106
  6. DEXAMETHASONE [Concomitant]
     Route: 050
     Dates: start: 20110707
  7. AVASTIN [Suspect]
     Indication: DIABETIC RETINAL OEDEMA
     Route: 050
     Dates: start: 20090410
  8. KENALOG [Concomitant]
     Dates: start: 20090220
  9. INSULIN [Concomitant]
     Route: 048
  10. AVASTIN [Suspect]
     Dates: start: 20110707
  11. AVASTIN [Suspect]
     Dates: start: 20111117

REACTIONS (7)
  - TRANSMISSION OF AN INFECTIOUS AGENT VIA A MEDICINAL PRODUCT [None]
  - HYPOPYON [None]
  - EYE PAIN [None]
  - ENDOPHTHALMITIS [None]
  - BLINDNESS [None]
  - VITREAL CELLS [None]
  - PRODUCT QUALITY ISSUE [None]
